FAERS Safety Report 21780635 (Version 2)
Quarter: 2023Q1

REPORT INFORMATION
  Report Type: Report from Study
  Country: US (occurrence: US)
  Receive Date: 20221227
  Receipt Date: 20230201
  Transmission Date: 20230418
  Serious: No
  Sender: FDA-Public Use
  Company Number: US-ABBVIE-4210825

PATIENT
  Sex: Male

DRUGS (1)
  1. HUMIRA [Suspect]
     Active Substance: ADALIMUMAB
     Indication: Psoriatic arthropathy
     Dosage: CF?FORM STRENGTH: 40 MG?ONSET DATE FOR THE EVENT WISDOM TOOTH PULLED WAS 2022
     Route: 058
     Dates: start: 20220415

REACTIONS (1)
  - Wisdom teeth removal [Unknown]
